FAERS Safety Report 9373195 (Version 1)
Quarter: 2013Q2

REPORT INFORMATION
  Report Type: Spontaneous
  Country: FR (occurrence: FR)
  Receive Date: 20130627
  Receipt Date: 20130627
  Transmission Date: 20140414
  Serious: Yes (Hospitalization)
  Sender: FDA-Public Use
  Company Number: FR-TEVA-415410ISR

PATIENT
  Age: 64 Year
  Sex: Male

DRUGS (1)
  1. FUROSEMIDE TEVA 40 MG [Suspect]
     Dosage: DURATION SEVERAL YEARS

REACTIONS (7)
  - Pulmonary oedema [Unknown]
  - Lung infection [Unknown]
  - Cardiac failure [Unknown]
  - Coma [Unknown]
  - Somnolence [Unknown]
  - Local swelling [Unknown]
  - Local swelling [Unknown]
